FAERS Safety Report 7980060-1 (Version None)
Quarter: 2011Q4

REPORT INFORMATION
  Report Type: 
  Country: None (occurrence: None)
  Receive Date: 20111212
  Receipt Date: 20111206
  Transmission Date: 20120403
  Serious: Yes (Other)
  Sender: FDA-Public Use
  Company Number: KV201100283

PATIENT
  Age: 23 Year
  Sex: Female

DRUGS (1)
  1. MAKENA [Suspect]
     Indication: PREMATURE DELIVERY
     Dosage: 250MG, ONCE WEEKLY, INTRAMUSCULAR
     Route: 030
     Dates: start: 20111117, end: 20111117

REACTIONS (5)
  - CHORIOAMNIONITIS [None]
  - PYREXIA [None]
  - PREMATURE LABOUR [None]
  - MATERNAL DRUGS AFFECTING FOETUS [None]
  - STILLBIRTH [None]
